FAERS Safety Report 23682942 (Version 2)
Quarter: 2024Q1

REPORT INFORMATION
  Report Type: Report from Study
  Country: GB (occurrence: GB)
  Receive Date: 20240328
  Receipt Date: 20240329
  Transmission Date: 20240409
  Serious: Yes (Hospitalization, Other)
  Sender: FDA-Public Use
  Company Number: GB-IPSEN Group, Research and Development-2024-03780

PATIENT
  Sex: Female

DRUGS (1)
  1. LANREOTIDE ACETATE [Suspect]
     Active Substance: LANREOTIDE ACETATE
     Indication: Neuroendocrine tumour
     Route: 058
     Dates: start: 20240213

REACTIONS (7)
  - Bradycardia [Unknown]
  - Dyspnoea [Unknown]
  - Dizziness [Unknown]
  - Dyspnoea exertional [Unknown]
  - Fear [Unknown]
  - Palpitations [Unknown]
  - Off label use [Unknown]
